FAERS Safety Report 10888963 (Version 4)
Quarter: 2017Q2

REPORT INFORMATION
  Report Type: Report from Study
  Country: FR (occurrence: FR)
  Receive Date: 20150305
  Receipt Date: 20170621
  Transmission Date: 20170829
  Serious: Yes (Hospitalization)
  Sender: FDA-Public Use
  Company Number: FR-ROCHE-1544376

PATIENT
  Age: 58 Year
  Sex: Female
  Weight: 57.3 kg

DRUGS (24)
  1. ZELITREX [Concomitant]
     Active Substance: VALACYCLOVIR HYDROCHLORIDE
     Indication: ANTIVIRAL PROPHYLAXIS
     Route: 065
     Dates: start: 20131203
  2. GRANOCYTE [Concomitant]
     Active Substance: LENOGRASTIM
     Route: 065
     Dates: start: 20140430, end: 20140504
  3. GRANOCYTE [Concomitant]
     Active Substance: LENOGRASTIM
     Route: 065
     Dates: start: 20141114, end: 20141118
  4. GRANOCYTE [Concomitant]
     Active Substance: LENOGRASTIM
     Route: 065
     Dates: start: 20141211, end: 20141215
  5. POLARAMINE [Concomitant]
     Active Substance: DEXCHLORPHENIRAMINE MALEATE
     Dosage: AT DAY 1 OF EACH COURSE
     Route: 065
     Dates: start: 20131203
  6. FOLINORAL [Concomitant]
     Active Substance: LEUCOVORIN CALCIUM
     Route: 065
     Dates: start: 20141021
  7. AMLOR [Concomitant]
     Active Substance: AMLODIPINE BESYLATE
     Indication: HYPERTENSION
     Route: 065
     Dates: start: 20040319
  8. SOLU-MEDROL [Concomitant]
     Active Substance: METHYLPREDNISOLONE SODIUM SUCCINATE
     Dosage: AT DAY 1 OF EACH COURSE
     Route: 065
     Dates: start: 20131203
  9. ZOPHREN [Concomitant]
     Active Substance: ONDANSETRON
     Dosage: AS REQUIRED
     Route: 065
     Dates: start: 20131105
  10. MONURIL [Concomitant]
     Active Substance: FOSFOMYCIN SODIUM
     Indication: CYSTITIS
     Route: 065
     Dates: start: 20140220, end: 20140225
  11. AMOXICILLINE [Concomitant]
     Active Substance: AMOXICILLIN
     Indication: LUNG INFECTION
     Route: 065
     Dates: start: 20140215, end: 20140219
  12. PERFALGAN [Concomitant]
     Active Substance: ACETAMINOPHEN
     Dosage: AT DAY 1 OF EACH COURSE
     Route: 065
     Dates: start: 20131203
  13. RITUXIMAB [Suspect]
     Active Substance: RITUXIMAB
     Indication: NON-HODGKIN^S LYMPHOMA
     Dosage: LAST DOSE PRIOR TO SAE DATE : 21/OCT/2014
     Route: 058
     Dates: start: 20131230
  14. ZOPHREN [Concomitant]
     Active Substance: ONDANSETRON
     Dosage: AT DAY 1 AND 2 OF EACH COURSE
     Route: 065
     Dates: start: 20131203
  15. GRANOCYTE [Concomitant]
     Active Substance: LENOGRASTIM
     Indication: NEUTROPENIA
     Route: 065
     Dates: start: 20140724, end: 20140728
  16. RITUXIMAB [Suspect]
     Active Substance: RITUXIMAB
     Indication: NON-HODGKIN^S LYMPHOMA
     Dosage: DATE OF LAST DOSE PRIOR TO SAE: 03/DEC/2013
     Route: 042
     Dates: start: 20131203
  17. INEXIUM [Concomitant]
     Active Substance: ESOMEPRAZOLE
     Indication: GASTROOESOPHAGEAL REFLUX DISEASE
     Route: 065
     Dates: start: 20080207
  18. BACTRIM [Concomitant]
     Active Substance: SULFAMETHOXAZOLE\TRIMETHOPRIM
     Indication: ANTIBIOTIC PROPHYLAXIS
     Route: 065
     Dates: start: 20131203, end: 20141216
  19. GRANOCYTE [Concomitant]
     Active Substance: LENOGRASTIM
     Route: 065
     Dates: start: 20140918, end: 20140922
  20. ACUPAN [Concomitant]
     Active Substance: NEFOPAM HYDROCHLORIDE
     Route: 065
     Dates: start: 20131204, end: 20131204
  21. ALDACTONE [Concomitant]
     Active Substance: SPIRONOLACTONE
     Indication: HYPERTENSION
     Route: 065
     Dates: start: 20040319
  22. LOVENOX [Concomitant]
     Active Substance: ENOXAPARIN SODIUM
     Route: 065
     Dates: start: 20131202, end: 20131230
  23. ORELOX [Concomitant]
     Active Substance: CEFPODOXIME
     Indication: LUNG INFECTION
     Route: 065
     Dates: start: 20150119, end: 20150201
  24. AMOXICILLINE [Concomitant]
     Active Substance: AMOXICILLIN
     Route: 065
     Dates: start: 20150213, end: 20150216

REACTIONS (1)
  - Febrile neutropenia [Recovered/Resolved]

NARRATIVE: CASE EVENT DATE: 20150213
